FAERS Safety Report 25203125 (Version 1)
Quarter: 2025Q2

REPORT INFORMATION
  Report Type: Spontaneous
  Country: ET (occurrence: ET)
  Receive Date: 20250416
  Receipt Date: 20250416
  Transmission Date: 20250716
  Serious: Yes (Hospitalization, Other)
  Sender: AUROBINDO
  Company Number: ET-AUROBINDO-AUR-APL-2025-020106

PATIENT
  Age: 29 Year
  Sex: Male

DRUGS (1)
  1. OLANZAPINE [Suspect]
     Active Substance: OLANZAPINE
     Indication: Schizophrenia
     Dosage: 5 MILLIGRAM, TWO TIMES A DAY
     Route: 048

REACTIONS (11)
  - Schizophrenia [Unknown]
  - Communication disorder [Unknown]
  - Hallucination, auditory [Unknown]
  - Vision blurred [Unknown]
  - Depressive symptom [Unknown]
  - Social problem [Unknown]
  - Loss of personal independence in daily activities [Unknown]
  - Speech disorder [Unknown]
  - Muscle rigidity [Unknown]
  - Persecutory delusion [Unknown]
  - Dysphemia [Unknown]
